FAERS Safety Report 25366676 (Version 1)
Quarter: 2025Q2

REPORT INFORMATION
  Report Type: Spontaneous
  Country: US (occurrence: US)
  Receive Date: 20250528
  Receipt Date: 20250528
  Transmission Date: 20250716
  Serious: Yes (Life-Threatening, Hospitalization, Other)
  Sender: ALVOGEN
  Company Number: US-ALVOGEN-2025098015

PATIENT
  Age: 81 Year
  Sex: Male

DRUGS (4)
  1. FLECAINIDE [Suspect]
     Active Substance: FLECAINIDE
     Indication: Product used for unknown indication
  2. AMLODIPINE [Concomitant]
     Active Substance: AMLODIPINE BESYLATE
     Indication: Product used for unknown indication
  3. APIXABAN [Concomitant]
     Active Substance: APIXABAN
     Indication: Product used for unknown indication
  4. TORSEMIDE [Concomitant]
     Active Substance: TORSEMIDE
     Indication: Product used for unknown indication

REACTIONS (13)
  - Toxicity to various agents [Unknown]
  - Cardiac failure acute [Unknown]
  - Sinus bradycardia [Unknown]
  - Dyspnoea exertional [Unknown]
  - Ventricular tachycardia [Recovered/Resolved]
  - Hypotension [Unknown]
  - Atrioventricular block complete [Unknown]
  - Cardiac arrest [Unknown]
  - Electrocardiogram QT prolonged [Recovering/Resolving]
  - Electrocardiogram QRS complex prolonged [Recovering/Resolving]
  - Ventricular arrhythmia [Unknown]
  - Conduction disorder [Recovered/Resolved]
  - Increased dose administered [Unknown]
